FAERS Safety Report 8873293 (Version 1)
Quarter: 2012Q4

REPORT INFORMATION
  Report Type: 
  Country: US (occurrence: US)
  Receive Date: 20121023
  Receipt Date: 20121023
  Transmission Date: 20130627
  Serious: Yes (Life-Threatening, Other)
  Sender: FDA-Public Use
  Company Number: US-ASTELLAS-2012US009813

PATIENT
  Age: 60 Year
  Sex: Female

DRUGS (3)
  1. LEXISCAN [Suspect]
     Indication: SCAN MYOCARDIAL PERFUSION
     Dosage: UNK
     Route: 065
     Dates: start: 20120926, end: 20120926
  2. LEXISCAN [Suspect]
     Indication: POSITRON EMISSION TOMOGRAM
     Dosage: UNK
     Route: 065
     Dates: start: 201203, end: 201203
  3. UNSPECIFIED INGREDIENT [Suspect]
     Indication: SCAN MYOCARDIAL PERFUSION
     Dosage: UNK
     Route: 065
     Dates: start: 20120926, end: 20120926

REACTIONS (5)
  - Off label use [Unknown]
  - Dyspnoea [Unknown]
  - Hypertension [Unknown]
  - Anxiety [Unknown]
  - Headache [Unknown]
